FAERS Safety Report 7019611-2 (Version None)
Quarter: 2010Q3

REPORT INFORMATION
  Report Type: 
  Country: None (occurrence: None)
  Receive Date: 20100928
  Receipt Date: 20100928
  Transmission Date: 20110219
  Serious: Yes (Other)
  Sender: FDA-Public Use
  Company Number: None

PATIENT
  Age: 49 Year
  Sex: Female
  Weight: 81.8 kg

DRUGS (3)
  1. NORTRIPTYLINE HCL [Suspect]
     Indication: ANXIETY
     Dosage: 25 MG 1 X AT NIGHT
     Dates: start: 20100918, end: 20100919
  2. NORTRIPTYLINE HCL [Suspect]
     Indication: COLITIS
     Dosage: 25 MG 1 X AT NIGHT
     Dates: start: 20100918, end: 20100919
  3. NORTRIPTYLINE HCL [Suspect]
     Indication: PROPHYLAXIS AGAINST DIARRHOEA
     Dosage: 25 MG 1 X AT NIGHT
     Dates: start: 20100918, end: 20100919

REACTIONS (5)
  - ARTHRALGIA [None]
  - BACK PAIN [None]
  - CHEST PAIN [None]
  - MUSCULOSKELETAL PAIN [None]
  - NECK PAIN [None]
